FAERS Safety Report 7808738-0 (Version None)
Quarter: 2011Q4

REPORT INFORMATION
  Report Type: 
  Country: None (occurrence: None)
  Receive Date: 20111012
  Receipt Date: 20111004
  Transmission Date: 20120403
  Serious: Yes (Hospitalization, Other)
  Sender: FDA-Public Use
  Company Number: US-AMGEN-USASP2011049158

PATIENT
  Age: 76 Year
  Sex: Male
  Weight: 119.27 kg

DRUGS (1)
  1. NPLATE [Suspect]
     Indication: IDIOPATHIC THROMBOCYTOPENIC PURPURA
     Dosage: 1 MUG/KG, UNK
     Route: 058
     Dates: start: 20110111, end: 20110518

REACTIONS (5)
  - THROMBOCYTOPENIA [None]
  - SMALL INTESTINAL OBSTRUCTION [None]
  - EXTRANODAL MARGINAL ZONE B-CELL LYMPHOMA (MALT TYPE) [None]
  - SMALL INTESTINE CARCINOMA [None]
  - ILEUS [None]
